FAERS Safety Report 4396844-5 (Version None)
Quarter: 2004Q3

REPORT INFORMATION
  Report Type: 
  Country: None (occurrence: None)
  Receive Date: 20040708
  Receipt Date: 20040628
  Transmission Date: 20050211
  Serious: Yes (Hospitalization)
  Sender: FDA-Public Use
  Company Number: 2004SE03638

PATIENT
  Age: 75 Year
  Sex: Female
  Weight: 57 kg

DRUGS (4)
  1. ARIMIDEX [Suspect]
     Indication: BREAST CANCER
     Dosage: 1 MG DAILY PO
     Route: 048
     Dates: start: 20030601
  2. AGGRENOX [Concomitant]
  3. NOVATEC [Concomitant]
  4. ASPEGIC 325 [Concomitant]

REACTIONS (1)
  - GASTRIC ULCER HAEMORRHAGE [None]
